FAERS Safety Report 20968915 (Version 1)
Quarter: 2022Q2

REPORT INFORMATION
  Report Type: Spontaneous
  Country: CN (occurrence: CN)
  Receive Date: 20220616
  Receipt Date: 20220616
  Transmission Date: 20220721
  Serious: Yes (Other)
  Sender: FDA-Public Use
  Company Number: CN-NOVARTISPH-NVSC2022CN138607

PATIENT

DRUGS (1)
  1. BENAZEPRIL HYDROCHLORIDE [Suspect]
     Active Substance: BENAZEPRIL HYDROCHLORIDE
     Indication: Essential hypertension
     Dosage: 10 MG EACH TIME, UNKNOWN
     Route: 048

REACTIONS (1)
  - Hypokalaemia [Unknown]
